FAERS Safety Report 7054540-X (Version None)
Quarter: 2010Q4

REPORT INFORMATION
  Report Type: 
  Country: None (occurrence: None)
  Receive Date: 20101020
  Receipt Date: 20101011
  Transmission Date: 20110411
  Serious: Yes (Hospitalization)
  Sender: FDA-Public Use
  Company Number: CA-ELI_LILLY_AND_COMPANY-CA201010002527

PATIENT
  Age: 74 Year
  Sex: Female

DRUGS (9)
  1. FORTEO [Suspect]
     Indication: OSTEOPOROSIS
     Dosage: 20 UG, DAILY (1/D)
     Route: 058
     Dates: start: 20090929
  2. CALCIUM [Concomitant]
  3. VERAPAMIL [Concomitant]
  4. COZAAR [Concomitant]
  5. ASAPHEN [Concomitant]
  6. TAMOXIFEN CITRATE [Concomitant]
  7. BIFOLAC [Concomitant]
  8. ZYPREXA [Concomitant]
  9. PANTOLOC /01263202/ [Concomitant]

REACTIONS (1)
  - CLOSTRIDIAL INFECTION [None]
